FAERS Safety Report 5963983-4 (Version None)
Quarter: 2008Q4

REPORT INFORMATION
  Report Type: 
  Country: None (occurrence: None)
  Receive Date: 20081124
  Receipt Date: 20081114
  Transmission Date: 20090506
  Serious: Yes (Hospitalization)
  Sender: FDA-Public Use
  Company Number: FI-ASTRAZENECA-2008SE05354

PATIENT

DRUGS (2)
  1. QUETIAPINE FUMARATE [Suspect]
     Route: 048
  2. VALPROATE SODIUM [Suspect]

REACTIONS (1)
  - HAEMATOLOGY TEST ABNORMAL [None]
